FAERS Safety Report 6369158-1 (Version None)
Quarter: 2009Q3

REPORT INFORMATION
  Report Type: 
  Country: None (occurrence: None)
  Receive Date: 20090918
  Receipt Date: 20090918
  Transmission Date: 20100115
  Serious: Yes (Hospitalization)
  Sender: FDA-Public Use
  Company Number: None

PATIENT
  Sex: Male
  Weight: 36.5 kg

DRUGS (6)
  1. CYCLOPHOSPHAMIDE [Suspect]
     Dosage: 2430 MG
     Dates: end: 20090728
  2. CYTARABINE [Suspect]
     Dosage: 1440 MG
     Dates: end: 20090806
  3. MERCAPTOPURINE [Suspect]
     Dosage: 2100 MG
     Dates: end: 20090811
  4. METHOTREXATE [Suspect]
     Dosage: 48 MG
     Dates: end: 20090709
  5. PEG-L ASPARAGINASE (K-H) [Suspect]
     Dosage: 6080 MG
     Dates: end: 20090810
  6. VINCRISTINE SULFATE [Suspect]
     Dosage: 7.2 MG
     Dates: end: 20090817

REACTIONS (9)
  - BODY TEMPERATURE INCREASED [None]
  - COMPLEX PARTIAL SEIZURES [None]
  - ENCEPHALOPATHY [None]
  - ESCHERICHIA INFECTION [None]
  - FEBRILE NEUTROPENIA [None]
  - NEUROLOGICAL DECOMPENSATION [None]
  - RESPIRATORY DISORDER [None]
  - RESPIRATORY SYNCYTIAL VIRUS TEST POSITIVE [None]
  - STREPTOCOCCAL INFECTION [None]
